FAERS Safety Report 4913559-2 (Version None)
Quarter: 2006Q1

REPORT INFORMATION
  Report Type: 
  Country: None (occurrence: None)
  Receive Date: 20060216
  Receipt Date: 20060109
  Transmission Date: 20060701
  Serious: Yes (Hospitalization)
  Sender: FDA-Public Use
  Company Number: 2006AP00055

PATIENT
  Age: 83 Year
  Sex: Female
  Weight: 35 kg

DRUGS (29)
  1. MEROPEN [Suspect]
     Indication: PNEUMONIA
     Route: 041
     Dates: start: 20050930, end: 20051011
  2. MEROPEN [Suspect]
     Indication: URINARY TRACT INFECTION
     Route: 041
     Dates: start: 20050930, end: 20051011
  3. MEROPEN [Suspect]
     Route: 041
     Dates: start: 20051015, end: 20051015
  4. MEROPEN [Suspect]
     Route: 041
     Dates: start: 20051015, end: 20051015
  5. MEROPEN [Suspect]
     Route: 041
     Dates: start: 20051016, end: 20051020
  6. MEROPEN [Suspect]
     Route: 041
     Dates: start: 20051016, end: 20051020
  7. NITRODERM [Concomitant]
     Indication: ANGINA PECTORIS
     Route: 062
     Dates: start: 20050101
  8. FLUMARIN [Concomitant]
     Indication: PYREXIA
     Route: 041
     Dates: start: 20050926, end: 20050930
  9. DIGILANOGEN C [Concomitant]
     Indication: ATRIAL FIBRILLATION
     Route: 042
     Dates: start: 20050928
  10. DIGILANOGEN C [Concomitant]
     Route: 042
     Dates: start: 20051016, end: 20051024
  11. DOPASTON [Concomitant]
     Indication: PARKINSONISM
     Route: 041
     Dates: start: 20050928
  12. RADICUT [Concomitant]
     Indication: CEREBRAL INFARCTION
     Route: 041
     Dates: start: 20050928, end: 20051011
  13. OKIRICON [Concomitant]
     Indication: CEREBRAL INFARCTION
     Route: 041
     Dates: start: 20050928, end: 20050928
  14. GLYCEOL [Concomitant]
     Indication: CEREBRAL INFARCTION
     Route: 041
     Dates: start: 20050928, end: 20051004
  15. GLYCEOL [Concomitant]
     Route: 041
     Dates: start: 20051005, end: 20051011
  16. LASIX [Concomitant]
     Indication: CARDIAC FAILURE CHRONIC
     Route: 042
     Dates: start: 20050930, end: 20051020
  17. NICHOLIN H [Concomitant]
     Indication: CEREBRAL INFARCTION
     Route: 041
     Dates: start: 20050930, end: 20051011
  18. NEOLAMIN 3B [Concomitant]
     Indication: VITAMIN SUPPLEMENTATION
     Route: 041
     Dates: start: 20050930, end: 20051006
  19. VITACIMIN [Concomitant]
     Indication: VITAMIN SUPPLEMENTATION
     Route: 041
     Dates: start: 20050930, end: 20051006
  20. POTASSIUM CHLORIDE [Concomitant]
     Indication: HYPOKALAEMIA
     Route: 041
     Dates: start: 20051005, end: 20051006
  21. ALEVAIRE [Concomitant]
     Indication: SPUTUM RETENTION
     Route: 055
     Dates: start: 20051006
  22. BISOLVON [Concomitant]
     Indication: SPUTUM RETENTION
     Route: 055
     Dates: start: 20051006
  23. VENETLIN [Concomitant]
     Indication: SPUTUM RETENTION
     Route: 055
     Dates: start: 20051006
  24. FULCALIQ NO 1 [Concomitant]
     Indication: ORAL INTAKE REDUCED
     Route: 041
     Dates: start: 20051007, end: 20051013
  25. FULCALIQ NO 1 [Concomitant]
     Route: 041
     Dates: start: 20051014, end: 20051021
  26. VOLVIX [Concomitant]
     Indication: ORAL INTAKE REDUCED
     Route: 041
     Dates: start: 20051007
  27. OXYGEN SUPPLEMENTATION [Concomitant]
     Route: 045
     Dates: start: 20051015
  28. OXYGEN SUPPLEMENTATION [Concomitant]
     Dates: start: 20051016, end: 20051020
  29. WARFARIN SODIUM [Concomitant]
     Dates: end: 20050825

REACTIONS (5)
  - HEPATIC FUNCTION ABNORMAL [None]
  - LIVER DISORDER [None]
  - OXYGEN SATURATION DECREASED [None]
  - PNEUMONIA [None]
  - URINARY TRACT INFECTION [None]
